FAERS Safety Report 9239682 (Version 1)
Quarter: 2013Q2

REPORT INFORMATION
  Report Type: Spontaneous
  Country: US (occurrence: US)
  Receive Date: 20130418
  Receipt Date: 20130418
  Transmission Date: 20140414
  Serious: No
  Sender: FDA-Public Use
  Company Number: US-PFIZER INC-2013120765

PATIENT
  Age: 59 Year
  Sex: Female

DRUGS (21)
  1. XELJANZ [Suspect]
     Dosage: 5 MG, 2X/DAY
     Route: 048
  2. MAXALT [Concomitant]
     Dosage: 5 MG, UNK
  3. ATIVAN [Concomitant]
     Dosage: 1 MG, UNK
  4. AMLODIPINE [Concomitant]
     Dosage: 2.5 MG, UNK
  5. METHOTREXATE [Concomitant]
     Dosage: 2.5 MG, UNK
  6. PREDNISONE [Concomitant]
     Dosage: 2.5 MG, UNK
  7. VOLTAREN [Concomitant]
     Dosage: 1%, UNK
  8. ZITHROMAX Z-PACK [Concomitant]
     Dosage: UNK
  9. LIPITOR [Concomitant]
     Dosage: 20 MG, UNK
  10. NEURONTIN [Concomitant]
     Dosage: 600 MG, UNK
  11. MORPHINE SULFATE [Concomitant]
     Dosage: 15MG/ML, UNK
  12. DICYCLOMINE [Concomitant]
     Dosage: 20 MG, UNK
  13. FOLIC ACID [Concomitant]
     Dosage: 1 MG, UNK
  14. BACLOFEN [Concomitant]
     Dosage: 10 MG, UNK
  15. WELLBUTRIN [Concomitant]
     Dosage: 75 MG, UNK
  16. IMURAN [Concomitant]
     Dosage: 50 MG, UNK
  17. ESOMEPRAZOLE MAGNESIUM/NAPROXEN [Concomitant]
     Dosage: 375-20MG, UNK
  18. PREVACID [Concomitant]
     Dosage: 30 MG, UNK
  19. TRAZODONE [Concomitant]
     Dosage: 150 MG, UNK
  20. ZANAFLEX [Concomitant]
     Dosage: 2 MG, UNK
  21. L-LYSINE [Concomitant]
     Dosage: 500 MG, UNK

REACTIONS (1)
  - Sinusitis [Unknown]
